FAERS Safety Report 5220196-1 (Version None)
Quarter: 2007Q1

REPORT INFORMATION
  Report Type: 
  Country: None (occurrence: None)
  Receive Date: 20061201
  Receipt Date: 20060818
  Transmission Date: 20070707
  Serious: Yes (Other)
  Sender: FDA-Public Use
  Company Number: PHEH2006US10651

PATIENT
  Age: 53 Year
  Sex: Female

DRUGS (1)
  1. LAMISIL [Suspect]
     Indication: NAIL TINEA
     Dosage: 250 MG QD ORAL
     Route: 048
     Dates: start: 20060101, end: 20060301

REACTIONS (2)
  - AGEUSIA [None]
  - WEIGHT DECREASED [None]
